FAERS Safety Report 15287263 (Version 1)
Quarter: 2018Q3

REPORT INFORMATION
  Report Type: Spontaneous
  Country: FR (occurrence: FR)
  Receive Date: 20180817
  Receipt Date: 20180817
  Transmission Date: 20181010
  Serious: Yes (Hospitalization, Other)
  Sender: FDA-Public Use
  Company Number: FR-BRISTOL-MYERS SQUIBB COMPANY-BMS-2018-076751

PATIENT
  Age: 86 Year
  Sex: Female
  Weight: 40 kg

DRUGS (2)
  1. MIANSERINE HCL [Suspect]
     Active Substance: MIANSERIN HYDROCHLORIDE
     Indication: DEPRESSION
     Dosage: 30 MG, QD
     Route: 047
     Dates: start: 20130101, end: 20171020
  2. METFORMIN HYDROCHLORIDE. [Suspect]
     Active Substance: METFORMIN HYDROCHLORIDE
     Indication: DIABETES MELLITUS
     Dosage: 1000 MG, QD
     Route: 048
     Dates: start: 20160101, end: 20171026

REACTIONS (4)
  - Folate deficiency [Recovering/Resolving]
  - Pancytopenia [Recovered/Resolved]
  - Vitamin B12 deficiency [Recovering/Resolving]
  - General physical health deterioration [Recovering/Resolving]

NARRATIVE: CASE EVENT DATE: 20171020
